FAERS Safety Report 12076488 (Version 16)
Quarter: 2017Q3

REPORT INFORMATION
  Report Type: Report from Study
  Country: US (occurrence: US)
  Receive Date: 20160215
  Receipt Date: 20170801
  Transmission Date: 20171127
  Serious: Yes (Hospitalization, Other)
  Sender: FDA-Public Use
  Company Number: PHHO2016US002014

PATIENT
  Age: 12 Year
  Sex: Male
  Weight: 37 kg

DRUGS (47)
  1. CAYSTON [Suspect]
     Active Substance: AZTREONAM
     Dosage: 75 OT, TID
     Route: 065
     Dates: start: 20160401, end: 20160428
  2. ALBUTEROL HFA [Concomitant]
     Active Substance: ALBUTEROL SULFATE
     Dosage: 2.5 MG, TID
     Route: 055
     Dates: end: 20170530
  3. TOBI [Suspect]
     Active Substance: TOBRAMYCIN
     Indication: INFECTIVE PULMONARY EXACERBATION OF CYSTIC FIBROSIS
     Dosage: 300 MG, BID
     Route: 055
     Dates: start: 20160101, end: 20160128
  4. TOBI [Suspect]
     Active Substance: TOBRAMYCIN
     Indication: HAEMOPTYSIS
     Dosage: 300 MG, BID
     Route: 055
     Dates: start: 20160317, end: 20160331
  5. TOBI [Suspect]
     Active Substance: TOBRAMYCIN
     Dosage: 300 MG, BID (TREATMENT TEMPORARILY INTERRUPTED ON 13 JUL 2016)
     Route: 055
     Dates: start: 20160701, end: 20160713
  6. CAYSTON [Suspect]
     Active Substance: AZTREONAM
     Dosage: UNK
     Route: 065
     Dates: start: 20160204, end: 20160214
  7. COLISTIN [Suspect]
     Active Substance: COLISTIN
     Indication: PRODUCT USED FOR UNKNOWN INDICATION
     Dosage: 150 MG, BID
     Route: 055
     Dates: start: 20160902, end: 20160929
  8. COLISTIN [Suspect]
     Active Substance: COLISTIN
     Dosage: 150 MG, BID
     Route: 055
     Dates: start: 20170301, end: 20170315
  9. FLUTICASONE. [Concomitant]
     Active Substance: FLUTICASONE
     Indication: PROPHYLAXIS
     Dosage: 2 DF (2 PUFF), BID
     Route: 055
     Dates: start: 20160229
  10. HYPERSAL [Concomitant]
     Dosage: 4 ML, TID
     Route: 055
     Dates: end: 20170315
  11. ALBUTEROL HFA [Concomitant]
     Active Substance: ALBUTEROL SULFATE
     Indication: WHEEZING
     Dosage: 1 OT (2 PUFF), PRN
     Route: 055
     Dates: start: 20160713
  12. ALBUTEROL HFA [Concomitant]
     Active Substance: ALBUTEROL SULFATE
     Indication: PROPHYLAXIS
     Dosage: 2.5 MG, BID
     Route: 055
     Dates: start: 20160818
  13. ALBUTEROL HFA [Concomitant]
     Active Substance: ALBUTEROL SULFATE
     Dosage: 2.5 MG, BID
     Route: 055
     Dates: start: 20160915
  14. DORNASE ALFA. [Concomitant]
     Active Substance: DORNASE ALFA
     Indication: PROPHYLAXIS
     Dosage: 2.5 MG, QD
     Route: 055
     Dates: start: 20160713
  15. CAYSTON [Suspect]
     Active Substance: AZTREONAM
     Indication: PRODUCT USED FOR UNKNOWN INDICATION
     Dosage: 75 OT, TID
     Route: 065
     Dates: start: 20151201, end: 20151228
  16. CAYSTON [Suspect]
     Active Substance: AZTREONAM
     Dosage: 75 OT, TID
     Route: 065
     Dates: start: 20160601, end: 20160628
  17. COLISTIN [Suspect]
     Active Substance: COLISTIN
     Dosage: 150 MG, BID
     Route: 055
     Dates: start: 20161212, end: 20161214
  18. HYPERSAL [Concomitant]
     Dosage: 4 ML, BID
     Route: 055
     Dates: start: 20160817
  19. HYPERSAL [Concomitant]
     Dosage: 4 ML, BID
     Route: 055
     Dates: start: 20161214
  20. TOBI [Suspect]
     Active Substance: TOBRAMYCIN
     Indication: PSEUDOMONAS INFECTION
     Dosage: 300 MG, BID
     Route: 055
     Dates: start: 20160502, end: 20160529
  21. TOBI [Suspect]
     Active Substance: TOBRAMYCIN
     Dosage: 300 MG, BID
     Route: 055
     Dates: start: 20160817
  22. TOBI [Suspect]
     Active Substance: TOBRAMYCIN
     Dosage: 300 MG, BID
     Route: 055
     Dates: start: 20161001, end: 20161028
  23. TOBI [Suspect]
     Active Substance: TOBRAMYCIN
     Dosage: 300 MG, BID
     Route: 055
     Dates: start: 20170201, end: 20170228
  24. CAYSTON [Suspect]
     Active Substance: AZTREONAM
     Dosage: 75 OT, TID
     Route: 065
     Dates: start: 20160215, end: 20160228
  25. COLISTIN [Suspect]
     Active Substance: COLISTIN
     Dosage: 150 MG, BID
     Route: 055
     Dates: start: 20170504
  26. HYPERSAL [Concomitant]
     Dosage: DOSE INCREASED
     Route: 055
     Dates: start: 20161208
  27. DORNASE ALFA. [Concomitant]
     Active Substance: DORNASE ALFA
     Dosage: 2.5 MG, QD
     Route: 055
     Dates: start: 20160817
  28. TOBI [Suspect]
     Active Substance: TOBRAMYCIN
     Dosage: 300 OT, BID
     Route: 055
     Dates: start: 20170404, end: 20170503
  29. AZTREONAM. [Suspect]
     Active Substance: AZTREONAM
     Dosage: 75 MG, TID
     Route: 055
     Dates: start: 20160628, end: 20160817
  30. HYPERSAL [Concomitant]
     Dosage: UNK
     Route: 065
     Dates: start: 20160818
  31. TOBI [Suspect]
     Active Substance: TOBRAMYCIN
     Indication: PNEUMONIA
     Dosage: 300 MG, BID
     Route: 055
     Dates: start: 20151103, end: 20151130
  32. COLISTIN [Suspect]
     Active Substance: COLISTIN
     Dosage: 150 MG, BID
     Route: 055
     Dates: start: 20161101, end: 20161128
  33. HYPERSAL [Concomitant]
     Dosage: 4 ML, TID
     Route: 055
     Dates: start: 20170530
  34. ALBUTEROL HFA [Concomitant]
     Active Substance: ALBUTEROL SULFATE
     Dosage: 2.5 MG, BID
     Route: 055
     Dates: start: 20161214
  35. TOBI [Suspect]
     Active Substance: TOBRAMYCIN
     Dosage: UNK
     Route: 055
     Dates: start: 20160714, end: 20160726
  36. AZTREONAM. [Suspect]
     Active Substance: AZTREONAM
     Dosage: 75 MG, UNK
     Route: 055
     Dates: start: 20160601, end: 20160628
  37. COLISTIN [Suspect]
     Active Substance: COLISTIN
     Dosage: 150 MG, BID
     Route: 055
     Dates: start: 20170103, end: 20170130
  38. COLISTIN [Suspect]
     Active Substance: COLISTIN
     Dosage: 150 MG, BID
     Route: 055
     Dates: start: 20170328, end: 20170403
  39. HYPERSAL [Concomitant]
     Indication: PROPHYLAXIS
     Dosage: 4 ML, BID
     Route: 055
     Dates: start: 20160229
  40. DORNASE ALFA. [Concomitant]
     Active Substance: DORNASE ALFA
     Dosage: UNK
     Route: 065
     Dates: start: 20160818
  41. TOBI [Suspect]
     Active Substance: TOBRAMYCIN
     Dosage: 300 MG, BID
     Route: 055
     Dates: start: 20160727, end: 20160817
  42. CAYSTON [Suspect]
     Active Substance: AZTREONAM
     Dosage: 75 OT, TID
     Route: 065
     Dates: start: 20160201, end: 20160203
  43. AZTREONAM. [Suspect]
     Active Substance: AZTREONAM
     Indication: PRODUCT USED FOR UNKNOWN INDICATION
     Dosage: 75 MG, TID
     Route: 055
     Dates: start: 20160201, end: 20160204
  44. COLISTIN [Suspect]
     Active Substance: COLISTIN
     Dosage: 150 MG, BID
     Route: 055
     Dates: start: 20170530
  45. HYPERSAL [Concomitant]
     Dosage: 4 ML, BID
     Route: 055
     Dates: start: 20160915
  46. ALBUTEROL HFA [Concomitant]
     Active Substance: ALBUTEROL SULFATE
     Indication: DYSPNOEA
     Dosage: 2.5 MG, QID
     Route: 055
     Dates: start: 20160713
  47. DORNASE ALFA. [Concomitant]
     Active Substance: DORNASE ALFA
     Dosage: 2.5 MG, QD
     Route: 055
     Dates: start: 20160819

REACTIONS (51)
  - Infective pulmonary exacerbation of cystic fibrosis [Recovered/Resolved]
  - Infective pulmonary exacerbation of cystic fibrosis [Recovered/Resolved]
  - Pneumonia [Recovered/Resolved]
  - Infective pulmonary exacerbation of cystic fibrosis [Recovered/Resolved]
  - Blood glucose increased [Unknown]
  - Haematocrit decreased [Unknown]
  - Haemoptysis [Unknown]
  - Chest pain [Recovered/Resolved]
  - Ageusia [Recovered/Resolved]
  - Oropharyngeal pain [Recovered/Resolved]
  - International normalised ratio increased [Unknown]
  - Haemoptysis [Recovered/Resolved]
  - Infective pulmonary exacerbation of cystic fibrosis [Recovered/Resolved]
  - Infective pulmonary exacerbation of cystic fibrosis [Unknown]
  - Weight increased [Unknown]
  - Red cell distribution width increased [Unknown]
  - Urticaria [Recovered/Resolved]
  - Anosmia [Recovered/Resolved]
  - Infective pulmonary exacerbation of cystic fibrosis [Recovered/Resolved]
  - Infective pulmonary exacerbation of cystic fibrosis [Unknown]
  - Haemoglobin decreased [Unknown]
  - Mean cell haemoglobin decreased [Unknown]
  - Sinus disorder [Recovered/Resolved]
  - Infective pulmonary exacerbation of cystic fibrosis [Recovered/Resolved]
  - Haemoptysis [Recovered/Resolved]
  - Pneumonia [Recovered/Resolved]
  - Infective pulmonary exacerbation of cystic fibrosis [Recovered/Resolved]
  - Pneumonia [Not Recovered/Not Resolved]
  - Forced expiratory volume decreased [Unknown]
  - Dermatitis contact [Recovered/Resolved]
  - Gamma-glutamyltransferase increased [Unknown]
  - Bronchial wall thickening [Unknown]
  - Pneumonia pseudomonal [Recovered/Resolved]
  - Infective pulmonary exacerbation of cystic fibrosis [Recovered/Resolved]
  - Infective pulmonary exacerbation of cystic fibrosis [Recovered/Resolved]
  - Bronchiectasis [Recovered/Resolved]
  - Microcytic anaemia [Unknown]
  - Blood bilirubin increased [Unknown]
  - Mean cell volume decreased [Unknown]
  - Sputum increased [Unknown]
  - Gastrooesophageal reflux disease [Unknown]
  - Pneumonia [Recovered/Resolved]
  - Infective pulmonary exacerbation of cystic fibrosis [Recovered/Resolved]
  - Infective pulmonary exacerbation of cystic fibrosis [Recovered/Resolved]
  - Prothrombin level increased [Unknown]
  - Cough [Not Recovered/Not Resolved]
  - Fatigue [Unknown]
  - Dyspnoea [Unknown]
  - Weight decreased [Unknown]
  - Vitamin D decreased [Unknown]
  - Decreased appetite [Unknown]

NARRATIVE: CASE EVENT DATE: 20160105
